FAERS Safety Report 5605296-6 (Version None)
Quarter: 2008Q1

REPORT INFORMATION
  Report Type: 
  Country: None (occurrence: None)
  Receive Date: 20080125
  Receipt Date: 20080125
  Transmission Date: 20080703
  Serious: Yes (Hospitalization)
  Sender: FDA-Public Use
  Company Number: None

PATIENT
  Age: 83 Year
  Sex: Female
  Weight: 62 kg

DRUGS (1)
  1. ADVIL LIQUI-GELS [Suspect]
     Indication: ARTHRITIS
     Dosage: PO CHRONIC
     Route: 048

REACTIONS (4)
  - ASTHENIA [None]
  - DIZZINESS [None]
  - FAECES DISCOLOURED [None]
  - PRESYNCOPE [None]
